FAERS Safety Report 14450080 (Version 3)
Quarter: 2018Q2

REPORT INFORMATION
  Report Type: Spontaneous
  Country: JP (occurrence: JP)
  Receive Date: 20180129
  Receipt Date: 20180517
  Transmission Date: 20180711
  Serious: Yes (Death, Other)
  Sender: FDA-Public Use
  Company Number: JP-MALLINCKRODT-T201800247

PATIENT
  Age: 55 Year
  Sex: Female
  Weight: 69 kg

DRUGS (17)
  1. FENTOS [Concomitant]
     Active Substance: FENTANYL
     Indication: ANALGESIC THERAPY
     Dosage: 7 MG
     Route: 062
     Dates: start: 20150914, end: 20151011
  2. MOHRUS [Concomitant]
     Active Substance: KETOPROFEN
     Indication: ANALGESIC THERAPY
     Dosage: 30 MG
     Route: 061
     Dates: start: 20151006, end: 20151006
  3. FENTANYL. [Concomitant]
     Active Substance: FENTANYL
     Indication: ANALGESIC THERAPY
     Dosage: P.R.N.,0.2MG
     Route: 051
     Dates: start: 20150926, end: 20150930
  4. MAGMITT [Concomitant]
     Active Substance: MAGNESIUM OXIDE
     Indication: PRODUCT USED FOR UNKNOWN INDICATION
     Dosage: 1500 MG
     Route: 048
  5. FUROSEMIDE. [Concomitant]
     Active Substance: FUROSEMIDE
     Indication: PRODUCT USED FOR UNKNOWN INDICATION
     Dosage: 20 MG
     Route: 048
     Dates: start: 20150707
  6. METHADONE [Suspect]
     Active Substance: METHADONE HYDROCHLORIDE
     Indication: CANCER PAIN
     Dosage: 15 MG (ONE TIME DOSE 5 MG)
     Route: 048
     Dates: start: 20150928, end: 20151004
  7. OXYCONTIN [Concomitant]
     Active Substance: OXYCODONE HYDROCHLORIDE
     Indication: ANALGESIC THERAPY
     Dosage: 80 MG
     Route: 048
     Dates: start: 20150824, end: 20151004
  8. CALONAL [Concomitant]
     Active Substance: ACETAMINOPHEN
     Indication: ANALGESIC THERAPY
     Dosage: 2400 MG
     Route: 048
     Dates: start: 20150630
  9. METHADONE [Suspect]
     Active Substance: METHADONE HYDROCHLORIDE
     Dosage: 20 MG (ONE TIME DOSE 10 MG)
     Route: 048
     Dates: start: 20151005, end: 20151011
  10. LYRICA [Concomitant]
     Active Substance: PREGABALIN
     Indication: ANALGESIC THERAPY
     Dosage: 150 MG
     Route: 048
     Dates: start: 20150925
  11. FESIN [Concomitant]
     Active Substance: IRON SUCROSE
     Indication: PRODUCT USED FOR UNKNOWN INDICATION
     Dosage: 80 MG
     Route: 042
     Dates: start: 20150926, end: 20151002
  12. FENTOS [Concomitant]
     Active Substance: FENTANYL
     Dosage: 4 MG
     Route: 062
     Dates: start: 20151012
  13. ARGAMATE [Concomitant]
     Active Substance: CALCIUM POLYSTYRENE SULFONATE
     Indication: PRODUCT USED FOR UNKNOWN INDICATION
     Dosage: 75 GM
     Route: 048
     Dates: start: 20151007
  14. METHADONE [Suspect]
     Active Substance: METHADONE HYDROCHLORIDE
     Dosage: 30 MG (ONE TIME DOSE 10 MG)
     Route: 048
     Dates: start: 20151012, end: 20151019
  15. RINDERON V [Concomitant]
     Active Substance: BETAMETHASONE VALERATE
     Indication: PRODUCT USED FOR UNKNOWN INDICATION
     Dosage: 2 MG
     Route: 051
     Dates: start: 20150925
  16. CEFMETAZON [Concomitant]
     Active Substance: CEFMETAZOLE SODIUM
     Indication: PRODUCT USED FOR UNKNOWN INDICATION
     Dosage: 3 GM
     Route: 042
     Dates: start: 20150928, end: 20151001
  17. OXIFAST [Concomitant]
     Active Substance: OXYCODONE
     Indication: ANALGESIC THERAPY
     Dosage: P.R.N.,10MG
     Route: 051
     Dates: start: 20151001

REACTIONS (2)
  - Cervix carcinoma [Fatal]
  - Blood potassium increased [Recovering/Resolving]

NARRATIVE: CASE EVENT DATE: 20151007
